FAERS Safety Report 9217233 (Version 2)
Quarter: 2013Q2

REPORT INFORMATION
  Report Type: Report from Study
  Country: DE (occurrence: DE)
  Receive Date: 20130408
  Receipt Date: 20130419
  Transmission Date: 20140414
  Serious: Yes (Hospitalization, Other)
  Sender: FDA-Public Use
  Company Number: PHHY2012DE128224

PATIENT
  Sex: Male

DRUGS (1)
  1. EXELON PATCH [Suspect]
     Dosage: 9.5 MG, DAILY
     Route: 062
     Dates: start: 201004

REACTIONS (4)
  - Atrial rupture [Unknown]
  - Myocardial rupture [Unknown]
  - Dementia Alzheimer^s type [Unknown]
  - Aggression [Unknown]
